FAERS Safety Report 4881129-0 (Version None)
Quarter: 2005Q4

REPORT INFORMATION
  Report Type: 
  Country: None (occurrence: None)
  Receive Date: 20051223
  Receipt Date: 20050914
  Transmission Date: 20060501
  Serious: No
  Sender: FDA-Public Use
  Company Number: 05P-163-0310961-00

PATIENT
  Age: 58 Year
  Sex: Female
  Weight: 72.5755 kg

DRUGS (5)
  1. HUMIRA [Suspect]
     Indication: RHEUMATOID ARTHRITIS
     Dosage: 40 MG, 1 IN 2 WK, SUBCUTANEOUS
     Route: 058
     Dates: start: 20040101, end: 20040201
  2. METHOTREXATE [Concomitant]
  3. FERROMYN S WITH FOLIC ACID [Concomitant]
  4. IBUPROFEN [Concomitant]
  5. DARVOCET [Concomitant]

REACTIONS (4)
  - ANXIETY [None]
  - BRONCHITIS [None]
  - DEPRESSION [None]
  - HEADACHE [None]
